FAERS Safety Report 4973243-6 (Version None)
Quarter: 2006Q2

REPORT INFORMATION
  Report Type: 
  Country: None (occurrence: None)
  Receive Date: 20060414
  Receipt Date: 20051207
  Transmission Date: 20061013
  Serious: Yes (Hospitalization, Disabling)
  Sender: FDA-Public Use
  Company Number: US-MERCK-0512USA01412

PATIENT
  Age: 53 Year
  Sex: Female
  Weight: 100 kg

DRUGS (5)
  1. VIOXX [Suspect]
     Indication: OSTEOARTHRITIS
     Route: 048
     Dates: start: 20000101, end: 20040901
  2. VIOXX [Suspect]
     Indication: TENDONITIS
     Route: 048
     Dates: start: 20000101, end: 20040901
  3. SYNTHROID [Concomitant]
     Route: 048
  4. ATENOLOL [Concomitant]
     Route: 048
  5. ZETIA [Concomitant]
     Route: 048

REACTIONS (10)
  - BRONCHITIS [None]
  - CORONARY ARTERY DISEASE [None]
  - ELECTROCARDIOGRAM ST SEGMENT DEPRESSION [None]
  - ELECTROCARDIOGRAM ST SEGMENT ELEVATION [None]
  - EMOTIONAL DISORDER [None]
  - HYPERTENSION [None]
  - METRORRHAGIA [None]
  - MYOCARDIAL INFARCTION [None]
  - TENDONITIS [None]
  - TRICUSPID VALVE INCOMPETENCE [None]
